FAERS Safety Report 21497693 (Version 1)
Quarter: 2022Q4

REPORT INFORMATION
  Report Type: Spontaneous
  Country: KR (occurrence: KR)
  Receive Date: 20221024
  Receipt Date: 20221024
  Transmission Date: 20230113
  Serious: Yes (Other)
  Sender: FDA-Public Use
  Company Number: KR-009507513-2210KOR007408

PATIENT
  Age: 49 Year
  Sex: Female
  Weight: 34.5 kg

DRUGS (8)
  1. PREVYMIS [Suspect]
     Active Substance: LETERMOVIR
     Indication: Antiviral prophylaxis
     Dosage: STRENGTH: 240 MG/ 12ML; UNK, ONCE DAILY
     Route: 042
     Dates: start: 20201022, end: 20201106
  2. PREVYMIS [Suspect]
     Active Substance: LETERMOVIR
     Indication: Antiviral prophylaxis
     Dosage: UNK, ONCE DAILY
     Route: 048
     Dates: start: 20201111, end: 20201221
  3. PREVYMIS [Suspect]
     Active Substance: LETERMOVIR
     Indication: Antiviral prophylaxis
     Dosage: UNK, ONCE DAILY
     Route: 048
     Dates: start: 20201222, end: 20210122
  4. TACROBELL SR [Concomitant]
     Indication: Prophylaxis against graft versus host disease
     Dosage: 0.75 MILLIGRAM, TWICE DAILY
     Route: 048
     Dates: start: 20201110
  5. LEVOFLOXACIN [Concomitant]
     Active Substance: LEVOFLOXACIN
     Indication: Breast cancer
     Dosage: 500 MILLIGRAM, ONCE DAILY
     Route: 048
     Dates: start: 20200530, end: 20211021
  6. ZOYLEX [ACICLOVIR] [Concomitant]
     Indication: Infection prophylaxis
     Dosage: 400 MILLIGRAM, ONCE DAILY
     Route: 048
     Dates: start: 20200530
  7. VFEND [Concomitant]
     Active Substance: VORICONAZOLE
     Indication: Infection prophylaxis
     Dosage: 200 MILLIGRAM, ONCE DAILY
     Route: 048
     Dates: start: 20201111, end: 20210507
  8. FENTADERM [Concomitant]
     Indication: Breast cancer
     Dosage: 12 MICROGRAM, ONCE DAILY; STRENGTH: 12?G/H
     Route: 062
     Dates: start: 20201021

REACTIONS (2)
  - Cytomegalovirus gastroenteritis [Unknown]
  - Drug ineffective [Unknown]

NARRATIVE: CASE EVENT DATE: 20210510
